FAERS Safety Report 7966090-4 (Version None)
Quarter: 2011Q4

REPORT INFORMATION
  Report Type: 
  Country: None (occurrence: None)
  Receive Date: 20111208
  Receipt Date: 20111128
  Transmission Date: 20120403
  Serious: Yes (Death)
  Sender: FDA-Public Use
  Company Number: JP-JNJFOC-20111112580

PATIENT
  Sex: Male

DRUGS (4)
  1. LENDORMIN [Concomitant]
     Indication: SCHIZOPHRENIA, PARANOID TYPE
     Route: 048
  2. HALOPERIDOL [Concomitant]
     Indication: SCHIZOPHRENIA, PARANOID TYPE
     Route: 048
     Dates: start: 20110816, end: 20110905
  3. INVEGA [Suspect]
     Indication: SCHIZOPHRENIA, PARANOID TYPE
     Route: 048
     Dates: start: 20110811, end: 20110815
  4. INVEGA [Suspect]
     Route: 048
     Dates: start: 20110816, end: 20110905

REACTIONS (1)
  - DEATH [None]
